FAERS Safety Report 9845751 (Version 1)
Quarter: 2014Q1

REPORT INFORMATION
  Report Type: Spontaneous
  Country: US (occurrence: US)
  Receive Date: 20140127
  Receipt Date: 20140127
  Transmission Date: 20141002
  Serious: No
  Sender: FDA-Public Use
  Company Number: US-PFIZER INC-2014022770

PATIENT
  Sex: Male

DRUGS (3)
  1. EFEXOR [Suspect]
     Dosage: UNK
  2. ZOLOFT [Suspect]
     Dosage: UNK
  3. LEXAPRO [Suspect]
     Dosage: UNK

REACTIONS (1)
  - Drug ineffective [Unknown]
